FAERS Safety Report 16397967 (Version 2)
Quarter: 2019Q2

REPORT INFORMATION
  Report Type: Report from Study
  Country: US (occurrence: US)
  Receive Date: 20190606
  Receipt Date: 20190624
  Transmission Date: 20190711
  Serious: Yes (Hospitalization, Other)
  Sender: FDA-Public Use
  Company Number: US-BRISTOL-MYERS SQUIBB COMPANY-BMS-2019-054602

PATIENT
  Age: 65 Year
  Sex: Female
  Weight: 71.21 kg

DRUGS (3)
  1. NIVOLUMAB [Suspect]
     Active Substance: NIVOLUMAB
     Indication: FIBROMA
     Dosage: 240 MILLIGRAM, Q2WK
     Route: 042
     Dates: start: 20190110
  2. IPILIMUMAB [Suspect]
     Active Substance: IPILIMUMAB
     Indication: FIBROMA
     Dosage: 81 MILLIGRAM, EVERY 12 WEEKS
     Route: 042
     Dates: start: 20190110
  3. TRABECTEDIN [Suspect]
     Active Substance: TRABECTEDIN
     Indication: FIBROMA
     Dosage: 2.2 MILLIGRAM, Q3WK
     Route: 042
     Dates: start: 20181227

REACTIONS (4)
  - Dyspnoea [Not Recovered/Not Resolved]
  - Oedema peripheral [Unknown]
  - Pneumonia [Recovered/Resolved]
  - Palpitations [Unknown]

NARRATIVE: CASE EVENT DATE: 20190521
